FAERS Safety Report 9325580 (Version 4)
Quarter: 2015Q2

REPORT INFORMATION
  Report Type: Report from Study
  Country: AR (occurrence: AR)
  Receive Date: 20130604
  Receipt Date: 20150603
  Transmission Date: 20150821
  Serious: Yes (Hospitalization, Other)
  Sender: FDA-Public Use
  Company Number: PHHY2013AR055944

PATIENT
  Age: 82 Year
  Sex: Female

DRUGS (1)
  1. DIOVAN [Suspect]
     Active Substance: VALSARTAN
     Indication: BLOOD PRESSURE ABNORMAL
     Dosage: 2 DF, QD
     Route: 048

REACTIONS (14)
  - Musculoskeletal discomfort [Not Recovered/Not Resolved]
  - Wrist fracture [Recovering/Resolving]
  - Skin lesion [Unknown]
  - Upper limb fracture [Recovering/Resolving]
  - Bone pain [Not Recovered/Not Resolved]
  - Catarrh [Unknown]
  - Joint injury [Not Recovered/Not Resolved]
  - Blood pressure increased [Recovered/Resolved]
  - Pain [Unknown]
  - Malaise [Recovered/Resolved]
  - Polyp [Unknown]
  - Bronchitis [Unknown]
  - Fall [Recovering/Resolving]
  - Rhinorrhoea [Unknown]

NARRATIVE: CASE EVENT DATE: 201411
